FAERS Safety Report 20494732 (Version 1)
Quarter: 2022Q1

REPORT INFORMATION
  Report Type: Spontaneous
  Country: CN (occurrence: CN)
  Receive Date: 20220221
  Receipt Date: 20220221
  Transmission Date: 20220423
  Serious: Yes (Hospitalization, Other)
  Sender: FDA-Public Use
  Company Number: CN-INGENUS PHARMACEUTICALS, LLC-2022INF000009

PATIENT
  Age: 66 Year
  Sex: Female

DRUGS (4)
  1. CYCLOPHOSPHAMIDE [Suspect]
     Active Substance: CYCLOPHOSPHAMIDE
     Indication: Thyroid cancer
     Dosage: 750 MILLIGRAM/SQ. METER, ON DAY 1
     Route: 042
  2. VINCRISTINE [Suspect]
     Active Substance: VINCRISTINE
     Indication: Thyroid cancer
     Dosage: 1.4 MILLIGRAM/SQ. METER, ON DAY 1
     Route: 042
  3. VINCRISTINE [Suspect]
     Active Substance: VINCRISTINE
     Dosage: 2 MILLIGRAM, ON DAY 1
     Route: 042
  4. PREDNISONE [Suspect]
     Active Substance: PREDNISONE
     Indication: Thyroid cancer
     Dosage: 40 MILLIGRAM/SQ. METER, QD, ON DAYS 1 TO 5
     Route: 048

REACTIONS (1)
  - Tracheo-oesophageal fistula [Unknown]
